FAERS Safety Report 11283032 (Version 1)
Quarter: 2015Q3

REPORT INFORMATION
  Report Type: Spontaneous
  Country: TR (occurrence: None)
  Receive Date: 20150716
  Receipt Date: 20150716
  Transmission Date: 20151125
  Serious: Yes (Other)
  Sender: FDA-Public Use
  Company Number: 2015-11729

PATIENT
  Age: 80 Year
  Sex: Male
  Weight: 82 kg

DRUGS (6)
  1. LIPITOR [Concomitant]
     Active Substance: ATORVASTATIN CALCIUM
  2. CIPRALEX (ESCITALOPRAM) [Concomitant]
  3. ADWIVALSAR CO (HYDROCHLOROTHIAZIDE, VALSARTAN) [Concomitant]
  4. AKTIPAR (... HYDROCHLORIDE, LEVODOPA) [Concomitant]
  5. EYLEA [Suspect]
     Active Substance: AFLIBERCEPT
     Indication: AGE-RELATED MACULAR DEGENERATION
  6. CORASPIN (ACETYLSALICYLIC ACID) [Concomitant]

REACTIONS (2)
  - Blindness [None]
  - Visual acuity reduced [None]

NARRATIVE: CASE EVENT DATE: 20150524
